FAERS Safety Report 15672891 (Version 1)
Quarter: 2018Q4

REPORT INFORMATION
  Report Type: Report from Study
  Country: US (occurrence: US)
  Receive Date: 20181129
  Receipt Date: 20181129
  Transmission Date: 20190205
  Serious: Yes (Other)
  Sender: FDA-Public Use
  Company Number: US-JNJFOC-20181138106

PATIENT
  Sex: Male

DRUGS (10)
  1. LEVOTHYROXINE. [Concomitant]
     Active Substance: LEVOTHYROXINE
  2. VENTOLINE [Concomitant]
     Active Substance: ALBUTEROL
  3. IMBRUVICA [Suspect]
     Active Substance: IBRUTINIB
     Indication: CHRONIC LYMPHOCYTIC LEUKAEMIA
     Route: 048
     Dates: start: 20180512
  4. LISINOPRIL. [Concomitant]
     Active Substance: LISINOPRIL
  5. IRON [Concomitant]
     Active Substance: IRON
  6. XARELTO [Concomitant]
     Active Substance: RIVAROXABAN
  7. TYLENOL [Concomitant]
     Active Substance: ACETAMINOPHEN
  8. ALLOPURINOL. [Concomitant]
     Active Substance: ALLOPURINOL
  9. CEFALEXIN [Concomitant]
     Active Substance: CEPHALEXIN
  10. LASIX [Concomitant]
     Active Substance: FUROSEMIDE

REACTIONS (2)
  - Blood iron decreased [Unknown]
  - Gastrointestinal ulcer haemorrhage [Recovered/Resolved]
